FAERS Safety Report 7790083-3 (Version None)
Quarter: 2011Q3

REPORT INFORMATION
  Report Type: 
  Country: None (occurrence: None)
  Receive Date: 20110930
  Receipt Date: 20100804
  Transmission Date: 20111222
  Serious: No
  Sender: FDA-Public Use
  Company Number: US-ASTRAZENECA-2010SE36425

PATIENT
  Age: 43 Year
  Sex: Female
  Weight: 77.1 kg

DRUGS (2)
  1. LUPRON [Concomitant]
  2. ARIMIDEX [Suspect]
     Indication: BREAST CANCER
     Route: 048
     Dates: start: 20090101

REACTIONS (2)
  - DIARRHOEA [None]
  - DRUG DOSE OMISSION [None]
